FAERS Safety Report 9919682 (Version 1)
Quarter: 2014Q1

REPORT INFORMATION
  Report Type: Report from Study
  Country: SE (occurrence: SE)
  Receive Date: 20140224
  Receipt Date: 20140224
  Transmission Date: 20141002
  Serious: Yes (Life-Threatening, Hospitalization)
  Sender: FDA-Public Use
  Company Number: SE-BRISTOL-MYERS SQUIBB COMPANY-20193793

PATIENT
  Age: 74 Year
  Sex: Female

DRUGS (2)
  1. ORENCIA FOR INJ [Suspect]
     Indication: RHEUMATOID ARTHRITIS
     Route: 042
     Dates: start: 20101006, end: 20131010
  2. PREDNISOLONE [Concomitant]

REACTIONS (4)
  - Asthma [Not Recovered/Not Resolved]
  - Cardiac arrest [Unknown]
  - Pneumonia [Unknown]
  - Pulmonary oedema [Unknown]
